FAERS Safety Report 8197368-X (Version None)
Quarter: 2012Q1

REPORT INFORMATION
  Report Type: 
  Country: None (occurrence: None)
  Receive Date: 20120309
  Receipt Date: 20120308
  Transmission Date: 20120608
  Serious: Yes (Hospitalization)
  Sender: FDA-Public Use
  Company Number: IT-BAYER-2012-022800

PATIENT
  Age: 88 Year
  Sex: Female

DRUGS (6)
  1. ASPIRIN [Suspect]
     Indication: PROPHYLAXIS
     Dosage: 100 MG, QD
     Route: 048
     Dates: start: 20090101, end: 20120127
  2. VOLTAREN [Suspect]
     Indication: NECK PAIN
     Dosage: DAILY DOSE 100 MG
     Route: 048
     Dates: start: 20111201, end: 20120127
  3. ROSUVASTATIN [Concomitant]
     Dosage: DAILY DOSE 10 MG
     Route: 048
  4. LUCEN [Concomitant]
     Dosage: DAILY DOSE 1 DF
  5. HYDROCHLOROTHIAZIDE [Concomitant]
     Dosage: DAILY DOSE 32.5 MG
     Route: 048
  6. METFORMIN HCL [Concomitant]
     Dosage: DAILY DOSE 1207.5 MG
     Route: 048

REACTIONS (2)
  - ANAEMIA [None]
  - GASTRITIS [None]
